FAERS Safety Report 5899690-6 (Version None)
Quarter: 2008Q3

REPORT INFORMATION
  Report Type: 
  Country: None (occurrence: None)
  Receive Date: 20080926
  Receipt Date: 20080912
  Transmission Date: 20090109
  Serious: Yes (Disabling, Other)
  Sender: FDA-Public Use
  Company Number: US-ELI_LILLY_AND_COMPANY-US200809003368

PATIENT
  Sex: Female

DRUGS (1)
  1. FORTEO [Suspect]
     Dates: end: 20080829

REACTIONS (2)
  - ABASIA [None]
  - FALL [None]
